FAERS Safety Report 8600868-9 (Version None)
Quarter: 2012Q3

REPORT INFORMATION
  Report Type: 
  Country: None (occurrence: None)
  Receive Date: 20120817
  Receipt Date: 20070614
  Transmission Date: 20120928
  Serious: Yes (Death)
  Sender: FDA-Public Use
  Company Number: CO-PFIZER INC-2012198480

PATIENT
  Age: 61 Year
  Sex: Female

DRUGS (3)
  1. LIPITOR [Suspect]
     Dosage: 10 MG, 1X/DAY
  2. GLIBENCLAMIDE [Concomitant]
     Dosage: 5 MG, 2X/DAY
  3. QUINAPRIL AND HYDROCHLOROTHIAZIDE [Suspect]
     Dosage: [QUINAPRIL HYDROCHLORIDE 20 MG]/ [HYDROCHLOROTHIAZIDE 12.5 MG], 1X/DAY

REACTIONS (2)
  - SKIN ULCER [None]
  - DEATH [None]
